FAERS Safety Report 9134535 (Version 1)
Quarter: 2013Q1

REPORT INFORMATION
  Report Type: Spontaneous
  Country: US (occurrence: US)
  Receive Date: 20130304
  Receipt Date: 20130304
  Transmission Date: 20140127
  Serious: Yes (Other)
  Sender: FDA-Public Use
  Company Number: US-BAYER-2013-026523

PATIENT
  Age: 52 Year
  Sex: Female

DRUGS (3)
  1. AVELOX [Suspect]
     Indication: NASOPHARYNGITIS
     Dosage: UNK
     Route: 048
     Dates: start: 20121221, end: 20121221
  2. AVELOX [Suspect]
     Indication: NASAL CONGESTION
  3. AVELOX [Suspect]
     Indication: COUGH

REACTIONS (5)
  - Nausea [Recovered/Resolved]
  - Anxiety [Recovered/Resolved]
  - Oedema peripheral [Recovered/Resolved]
  - Local swelling [Recovered/Resolved]
  - Hot flush [Recovered/Resolved]
